FAERS Safety Report 21337018 (Version 1)
Quarter: 2022Q3

REPORT INFORMATION
  Report Type: Spontaneous
  Country: US (occurrence: US)
  Receive Date: 20220915
  Receipt Date: 20220915
  Transmission Date: 20221027
  Serious: No
  Sender: FDA-Public Use
  Company Number: US-BAYER-2022A128196

PATIENT
  Sex: Female

DRUGS (1)
  1. MIRENA [Suspect]
     Active Substance: LEVONORGESTREL
     Dosage: 20?G/DAY
     Route: 015
     Dates: start: 20220714, end: 20220909

REACTIONS (3)
  - Abdominal pain lower [Recovered/Resolved]
  - Device expulsion [Recovered/Resolved]
  - Intentional medical device removal by patient [None]

NARRATIVE: CASE EVENT DATE: 20220909
